FAERS Safety Report 6473178-6 (Version None)
Quarter: 2009Q4

REPORT INFORMATION
  Report Type: 
  Country: None (occurrence: None)
  Receive Date: 20091204
  Receipt Date: 20080716
  Transmission Date: 20100525
  Serious: Yes (Other)
  Sender: FDA-Public Use
  Company Number: US-ELI_LILLY_AND_COMPANY-US200807004052

PATIENT
  Sex: Female
  Weight: 126.98 kg

DRUGS (26)
  1. BYETTA [Suspect]
     Indication: TYPE 2 DIABETES MELLITUS
     Dosage: 5 UG, 2/D
     Route: 058
     Dates: start: 20070101, end: 20070201
  2. BYETTA [Suspect]
     Dosage: 10 UG, 2/D
     Route: 058
     Dates: start: 20070201, end: 20070101
  3. BYETTA [Suspect]
     Dosage: 5 UG, DAILY (1/D)
     Route: 058
     Dates: start: 20070101, end: 20070101
  4. BYETTA [Suspect]
     Dosage: 10 UG, DAILY (1/D)
     Route: 058
     Dates: start: 20070101, end: 20070101
  5. BYETTA [Suspect]
     Dosage: 5 UG, 2/D
     Route: 058
     Dates: start: 20070101, end: 20080201
  6. ASPIRIN [Concomitant]
     Dosage: 81 MG, DAILY (1/D)
     Route: 058
  7. ATENOLOL [Concomitant]
     Dates: end: 20080601
  8. VITAMIN B-12 [Concomitant]
     Dosage: 100 UG, DAILY (1/D)
     Route: 048
  9. CRESTOR [Concomitant]
     Dosage: 10 MG, DAILY (1/D)
     Route: 048
  10. HYDROCHLOROTHIAZIDE [Concomitant]
     Dosage: 125 MG, DAILY (1/D)
     Route: 048
  11. HYDROCODONE [Concomitant]
     Indication: MIGRAINE
     Dosage: UNK, AS NEEDED
  12. LANTUS [Concomitant]
     Route: 058
  13. LISINOPRIL [Concomitant]
     Dosage: 40 MG, DAILY (1/D)
     Route: 048
  14. METFORMIN HCL [Concomitant]
     Dosage: UNK, 2/D
     Route: 048
  15. NEXIUM [Concomitant]
     Dosage: 40 MG, DAILY (1/D)
     Route: 048
  16. PLAVIX [Concomitant]
     Dosage: 75 MG, DAILY (1/D)
     Route: 048
  17. POTASSIUM [Concomitant]
     Dosage: UNK, DAILY (1/D)
     Route: 048
  18. MAGNESIUM [Concomitant]
     Dosage: UNK, DAILY (1/D)
     Route: 048
  19. PROMETHAZINE [Concomitant]
     Indication: MIGRAINE
     Dosage: 25 MG, AS NEEDED
     Route: 048
  20. SYNTHROID [Concomitant]
     Dosage: 150 UG, DAILY (1/D)
     Route: 048
  21. AMBIEN [Concomitant]
     Dosage: 10 MG, EACH EVENING
     Route: 048
  22. ZYRTEC [Concomitant]
     Dosage: 10 MG, DAILY (1/D)
     Route: 048
  23. FLONASE [Concomitant]
     Dosage: UNK, 2/D
  24. NIASPAN [Concomitant]
     Dosage: 500 MG, DAILY (1/D)
     Route: 048
  25. METOPROLOL [Concomitant]
     Dosage: 25 MG, DAILY (1/D)
     Route: 048
  26. TOPAMAX [Concomitant]
     Indication: MIGRAINE
     Route: 048
     Dates: start: 20080601, end: 20080701

REACTIONS (4)
  - BLOOD GLUCOSE DECREASED [None]
  - DECREASED APPETITE [None]
  - MYOCARDIAL INFARCTION [None]
  - TREMOR [None]
